FAERS Safety Report 19116836 (Version 1)
Quarter: 2021Q2

REPORT INFORMATION
  Report Type: Spontaneous
  Country: US (occurrence: US)
  Receive Date: 20210409
  Receipt Date: 20210409
  Transmission Date: 20210717
  Serious: Yes (Hospitalization)
  Sender: FDA-Public Use
  Company Number: US-BAYER-2021-116283

PATIENT
  Age: 54 Year
  Sex: Male
  Weight: 108.8 kg

DRUGS (18)
  1. NEURONTIN [Suspect]
     Active Substance: GABAPENTIN
  2. SODIUM CHLORIDE. [Suspect]
     Active Substance: SODIUM CHLORIDE
  3. IBUPROFEN. [Suspect]
     Active Substance: IBUPROFEN
  4. FLOMAX [Suspect]
     Active Substance: TAMSULOSIN HYDROCHLORIDE
  5. LIPITOR [Suspect]
     Active Substance: ATORVASTATIN CALCIUM
  6. VITAMIN B COMPLEX [Suspect]
     Active Substance: CYANOCOBALAMIN\DEXPANTHENOL\NIACINAMIDE\PYRIDOXINE HYDROCHLORIDE\RIBOFLAVIN 5^-PHOSPHATE SODIUM\THIAMINE HYDROCHLORIDE\VITAMIN B COMPLEX
  7. CHANTIX [Suspect]
     Active Substance: VARENICLINE TARTRATE
  8. BETA CAROTENE. [Suspect]
     Active Substance: BETA CAROTENE
  9. FLOVENT HFA [Suspect]
     Active Substance: FLUTICASONE PROPIONATE
  10. KENALOG COMP. MED MYCOSTATIN [Suspect]
     Active Substance: GRAMICIDIN\NEOMYCIN SULFATE\NYSTATIN\TRIAMCINOLONE ACETONIDE
  11. FERROUS SULFATE. [Suspect]
     Active Substance: FERROUS SULFATE
  12. MOTRIN CHILDREN [Suspect]
     Active Substance: IBUPROFEN
  13. BAYER LOW DOSE [Suspect]
     Active Substance: ASPIRIN
     Indication: PROPHYLAXIS
     Dosage: UNK
     Route: 048
  14. ZESTRIL [Suspect]
     Active Substance: LISINOPRIL
  15. NASONEX [Suspect]
     Active Substance: MOMETASONE FUROATE
  16. SEROQUEL [Suspect]
     Active Substance: QUETIAPINE FUMARATE
  17. CYMBALTA [Suspect]
     Active Substance: DULOXETINE HYDROCHLORIDE
  18. ZYPREXA [Suspect]
     Active Substance: OLANZAPINE

REACTIONS (2)
  - Hyponatraemia [None]
  - Dizziness [None]
